FAERS Safety Report 23896303 (Version 2)
Quarter: 2025Q4

REPORT INFORMATION
  Report Type: Report from Study
  Country: IN (occurrence: IN)
  Receive Date: 20240524
  Receipt Date: 20251216
  Transmission Date: 20260118
  Serious: Yes (Other)
  Sender: INCYTE
  Company Number: IN-002147023-NVSC2022IN093183

PATIENT
  Age: 71 Year

DRUGS (4)
  1. RUXOLITINIB [Suspect]
     Active Substance: RUXOLITINIB
     Indication: Primary myelofibrosis
     Dosage: 5 MG, BID (TWICE A DAY) (10MG BD TO 5MG BD)
     Route: 061
  2. RUXOLITINIB [Suspect]
     Active Substance: RUXOLITINIB
     Indication: Myeloproliferative neoplasm
     Dosage: 5 MG, QD
     Route: 065
  3. RUXOLITINIB [Suspect]
     Active Substance: RUXOLITINIB
     Indication: Janus kinase 2 mutation
     Dosage: 0.5 DOSAGE FORM (HALF TABLET OF JAKAVI 5 MG)
     Route: 065
  4. RUXOLITINIB [Suspect]
     Active Substance: RUXOLITINIB
     Indication: Myelofibrosis
     Dosage: 10 MG, BID
     Route: 061

REACTIONS (14)
  - Platelet count abnormal [Unknown]
  - Haemoglobin decreased [Unknown]
  - Hyperbilirubinaemia [Unknown]
  - Platelet count decreased [Unknown]
  - Blood pressure systolic increased [Unknown]
  - Pain [Unknown]
  - Blood creatinine abnormal [Unknown]
  - Fatigue [Unknown]
  - Splenomegaly [Unknown]
  - Liver disorder [Unknown]
  - Asthenia [Unknown]
  - Product use issue [Unknown]
  - Off label use [Unknown]
  - Wrong technique in product usage process [Not Recovered/Not Resolved]
